FAERS Safety Report 14256641 (Version 3)
Quarter: 2019Q4

REPORT INFORMATION
  Report Type: Spontaneous
  Country: US (occurrence: US)
  Receive Date: 20171206
  Receipt Date: 20191220
  Transmission Date: 20200122
  Serious: Yes (Other)
  Sender: FDA-Public Use
  Company Number: US-PFIZER INC-2017520175

PATIENT
  Age: 59 Year
  Sex: Male

DRUGS (3)
  1. VIAGRA [Suspect]
     Active Substance: SILDENAFIL CITRATE
     Dosage: 100 MG, AS NEEDED
     Route: 048
     Dates: start: 20130304, end: 20130404
  2. PRO AIR ALLBUTEROL [Concomitant]
     Indication: ASTHMA
     Dosage: UNK
     Dates: start: 20010102
  3. VIAGRA [Suspect]
     Active Substance: SILDENAFIL CITRATE
     Indication: ERECTILE DYSFUNCTION
     Dosage: UNK (6 SAMPLES)
     Route: 048
     Dates: start: 20130104

REACTIONS (1)
  - Malignant melanoma [Unknown]

NARRATIVE: CASE EVENT DATE: 20160510
